FAERS Safety Report 8824875 (Version 1)
Quarter: 2012Q4

REPORT INFORMATION
  Report Type: 
  Country: US (occurrence: US)
  Receive Date: 20121004
  Receipt Date: 20121004
  Transmission Date: 20130627
  Serious: Yes (Other)
  Sender: FDA-Public Use
  Company Number: US-ROCHE-1131318

PATIENT
  Sex: Female

DRUGS (5)
  1. RITUXAN [Suspect]
     Indication: IDIOPATHIC THROMBOCYTOPENIC PURPURA
     Route: 042
  2. RITUXAN [Suspect]
     Route: 065
     Dates: start: 19990104
  3. RITUXAN [Suspect]
     Dosage: Booster dose
     Route: 065
     Dates: start: 19990215
  4. RITUXAN [Suspect]
     Dosage: 4 doses
     Route: 065
     Dates: start: 19980714, end: 19980804
  5. RITUXAN [Suspect]
     Dosage: 4 doses
     Route: 065
     Dates: start: 19981228, end: 19990118

REACTIONS (8)
  - Thrombocytopenia [Unknown]
  - Hypoaesthesia [Unknown]
  - Oedema [Unknown]
  - Paraesthesia [Unknown]
  - Petechiae [Unknown]
  - Malaise [Unknown]
  - Oedema peripheral [Unknown]
  - Dry skin [Unknown]
